FAERS Safety Report 19615207 (Version 1)
Quarter: 2021Q3

REPORT INFORMATION
  Report Type: Spontaneous
  Country: US (occurrence: US)
  Receive Date: 20210727
  Receipt Date: 20210727
  Transmission Date: 20211014
  Serious: Yes (Other)
  Sender: FDA-Public Use
  Company Number: US-FRESENIUS KABI-FK202107585

PATIENT

DRUGS (1)
  1. NAROPIN [Suspect]
     Active Substance: ROPIVACAINE HYDROCHLORIDE
     Indication: NERVE BLOCK
     Dosage: CONCENTRATION 5 MG/ML IN 30 ML VIAL
     Route: 065
     Dates: start: 20210713

REACTIONS (4)
  - Medication error [Unknown]
  - Pain [Recovered/Resolved]
  - Therapeutic product effect decreased [Unknown]
  - Product temperature excursion issue [Unknown]
